FAERS Safety Report 23886988 (Version 1)
Quarter: 2024Q2

REPORT INFORMATION
  Report Type: Spontaneous
  Country: BR (occurrence: BR)
  Receive Date: 20240523
  Receipt Date: 20240523
  Transmission Date: 20240715
  Serious: Yes (Hospitalization, Other)
  Sender: FDA-Public Use
  Company Number: BR-NOVOPROD-1223344

PATIENT
  Age: 747 Month
  Sex: Female

DRUGS (2)
  1. NOVOLIN R [Suspect]
     Active Substance: INSULIN HUMAN
     Indication: Blood glucose abnormal
     Dosage: UNK
     Dates: start: 202303
  2. NOVOLIN N [Suspect]
     Active Substance: INSULIN HUMAN
     Indication: Blood glucose abnormal
     Dosage: UNK
     Dates: start: 202303

REACTIONS (5)
  - Eye haemorrhage [Unknown]
  - Blood pressure increased [Unknown]
  - Pain in extremity [Unknown]
  - Visual impairment [Unknown]
  - Product storage error [Unknown]

NARRATIVE: CASE EVENT DATE: 20230301
